FAERS Safety Report 6400408-9 (Version None)
Quarter: 2009Q4

REPORT INFORMATION
  Report Type: 
  Country: None (occurrence: None)
  Receive Date: 20091007
  Receipt Date: 20091007
  Transmission Date: 20100525
  Serious: Yes (Hospitalization)
  Sender: FDA-Public Use
  Company Number: None

PATIENT
  Sex: Female
  Weight: 97 kg

DRUGS (10)
  1. CARBOPLATIN [Suspect]
     Indication: BREAST CANCER
     Dosage: 83MG WEEKLY IV
     Route: 042
     Dates: start: 20090812, end: 20090909
  2. ABRAXANE [Suspect]
     Indication: BREAST CANCER
     Dosage: 129MG WEEKLY IV
     Route: 042
     Dates: start: 20090812, end: 20090909
  3. LANTUS [Concomitant]
  4. LASIX [Concomitant]
  5. HERCEPTIN [Concomitant]
  6. LOPRESSOR [Concomitant]
  7. PROTONIX [Concomitant]
  8. SIMVASTATIN [Concomitant]
  9. ZOFRAN [Concomitant]
  10. BENADRYL [Concomitant]

REACTIONS (7)
  - ARTHRALGIA [None]
  - CELLULITIS [None]
  - CHILLS [None]
  - DIZZINESS [None]
  - HYPOAESTHESIA [None]
  - MYALGIA [None]
  - PARAESTHESIA [None]
